FAERS Safety Report 8352059-7 (Version None)
Quarter: 2012Q2

REPORT INFORMATION
  Report Type: 
  Country: None (occurrence: None)
  Receive Date: 20120511
  Receipt Date: 20120430
  Transmission Date: 20120825
  Serious: Yes (Other)
  Sender: FDA-Public Use
  Company Number: ES-JNJFOC-20091201059

PATIENT
  Age: 44 Year
  Sex: Female

DRUGS (12)
  1. FOLIC ACID [Concomitant]
  2. FERRUM [Concomitant]
  3. NSAIDS [Concomitant]
  4. BENZODIAZEPINES NOS [Concomitant]
  5. GLUCOCORTICOIDS [Concomitant]
  6. ALL OTHER THERAPEUTIC PRODUCTS [Concomitant]
  7. ACETAMINOPHEN [Concomitant]
  8. CALCIUM WITH VITAMIN D [Concomitant]
  9. METHOTREXATE [Concomitant]
  10. REMICADE [Suspect]
     Indication: RHEUMATOID ARTHRITIS
     Dosage: DOSE REPORTED AS ^3^
     Route: 042
     Dates: start: 20081201, end: 20090323
  11. OMEPRAZOLE [Concomitant]
  12. DOLQUINE [Concomitant]

REACTIONS (1)
  - CERVICAL DYSPLASIA [None]
